FAERS Safety Report 19811687 (Version 1)
Quarter: 2021Q3

REPORT INFORMATION
  Report Type: Spontaneous
  Country: US (occurrence: US)
  Receive Date: 20210910
  Receipt Date: 20210910
  Transmission Date: 20211014
  Serious: No
  Sender: FDA-Public Use
  Company Number: US-ROCHE-2728954

PATIENT
  Age: 41 Year
  Sex: Male
  Weight: 87.75 kg

DRUGS (1)
  1. PEGASYS [Suspect]
     Active Substance: PEGINTERFERON ALFA-2A
     Indication: THROMBOCYTOPENIA
     Dosage: 180 MCG SQ EVERY WEEKLY
     Route: 058

REACTIONS (4)
  - Intentional product use issue [Unknown]
  - Intercepted product storage error [Unknown]
  - Off label use [Unknown]
  - No adverse event [Unknown]
